FAERS Safety Report 7947886-1 (Version None)
Quarter: 2011Q4

REPORT INFORMATION
  Report Type: 
  Country: None (occurrence: None)
  Receive Date: 20111123
  Receipt Date: 20111111
  Transmission Date: 20120403
  Serious: Yes (Hospitalization, Other)
  Sender: FDA-Public Use
  Company Number: 1000025647

PATIENT
  Age: 77 Year
  Sex: Female
  Weight: 80 kg

DRUGS (8)
  1. ENOXAPARIN SODIUM [Concomitant]
  2. TOREM COR (TORASEMIDE) (TORASEMIDE) [Concomitant]
  3. DIGITOXIN TAB [Suspect]
     Dates: end: 20111019
  4. ALDACTONE [Concomitant]
  5. LOESNESIUM (MAGNOSOLV) (MAGNOSOLV) [Concomitant]
  6. CEFUROXIM (CEFUROXIME SODIUM) (CEFUROXIME SODIUM) [Concomitant]
  7. ESCITALOPRAM OXALATE [Suspect]
     Indication: DEPRESSION
     Dosage: 10 MG (10 MG, 1 IN 1 D), ORAL
     Route: 048
     Dates: start: 20111017, end: 20111019
  8. BELOC ZOK MITE (METOPROLOL SUCCINATE) (METOPROLOL SUCCINATE) [Concomitant]

REACTIONS (2)
  - TORSADE DE POINTES [None]
  - DEHYDRATION [None]
